FAERS Safety Report 8126863 (Version 14)
Quarter: 2013Q4

REPORT INFORMATION
  Report Type: Report from Study
  Country: CA (occurrence: CA)
  Receive Date: 20110908
  Receipt Date: 20131119
  Transmission Date: 20140711
  Serious: Yes (Hospitalization, Other)
  Sender: FDA-Public Use
  Company Number: PHHY2009CA50603

PATIENT
  Age: 65 Year
  Sex: Male

DRUGS (6)
  1. SANDOSTATIN LAR [Suspect]
     Indication: METASTATIC CARCINOID TUMOUR
     Dosage: 20 MG, EVERY 4 WEEKS
     Route: 030
     Dates: start: 20090528
  2. SANDOSTATIN LAR [Suspect]
     Dosage: 20 MG (FREQUENCY NOT SPECIFIED)
     Route: 030
  3. SANDOSTATIN LAR [Suspect]
     Dosage: 20 MG, EVERY 25 DAYS
     Route: 030
  4. SANDOSTATIN LAR [Suspect]
     Dosage: 30 MG, ONCE A MONTH
     Route: 030
  5. SANDOSTATIN LAR [Suspect]
     Dosage: 30 MG, EVERY FOUR WEEKS
     Route: 030
  6. SANDOSTATIN LAR [Suspect]
     Dosage: 50 MG, EVERY 4 WEEKS
     Route: 030

REACTIONS (24)
  - Blood pressure increased [Not Recovered/Not Resolved]
  - Vomiting [Unknown]
  - Nausea [Recovered/Resolved]
  - Colon cancer [Unknown]
  - Second primary malignancy [Unknown]
  - Haemorrhoids [Unknown]
  - Food poisoning [Unknown]
  - Small intestinal obstruction [Unknown]
  - Diarrhoea [Recovering/Resolving]
  - Proctalgia [Not Recovered/Not Resolved]
  - Hot flush [Not Recovered/Not Resolved]
  - Stress [Unknown]
  - Aphagia [Unknown]
  - Feeling abnormal [Unknown]
  - Influenza [Unknown]
  - Pain [Unknown]
  - Wound [Recovering/Resolving]
  - Weight decreased [Unknown]
  - Thermal burn [Unknown]
  - Infrequent bowel movements [Unknown]
  - General physical health deterioration [Unknown]
  - Abdominal pain [Unknown]
  - Dizziness [Recovering/Resolving]
  - Dehydration [Unknown]
